FAERS Safety Report 12855227 (Version 1)
Quarter: 2016Q4

REPORT INFORMATION
  Report Type: Report from Study
  Country: AR (occurrence: AR)
  Receive Date: 20161017
  Receipt Date: 20161017
  Transmission Date: 20170207
  Serious: Yes (Hospitalization)
  Sender: FDA-Public Use
  Company Number: AR-ELI_LILLY_AND_COMPANY-AR201609007406

PATIENT
  Age: 73 Year
  Sex: Male
  Weight: 85 kg

DRUGS (7)
  1. CAPECITABINE. [Suspect]
     Active Substance: CAPECITABINE
     Indication: ADENOCARCINOMA GASTRIC
     Dosage: 1000 MG/M2, CYCLICAL
     Route: 048
     Dates: start: 20160714
  2. RAMUCIRUMAB [Suspect]
     Active Substance: RAMUCIRUMAB
     Indication: ADENOCARCINOMA GASTRIC
     Dosage: 8 MG/KG, CYCLICAL
     Route: 042
     Dates: start: 20160714
  3. LEVOTIROXINA [Concomitant]
     Active Substance: LEVOTHYROXINE SODIUM
     Indication: SUPPORTIVE CARE
     Dosage: UNK
     Dates: start: 20160721
  4. OMEPRAZOL                          /00661201/ [Concomitant]
     Active Substance: OMEPRAZOLE
     Indication: PROPHYLAXIS
     Dosage: UNK
     Dates: start: 20160620
  5. XYLOPROCTO [Concomitant]
     Indication: PROCTALGIA
     Dosage: UNK
     Dates: start: 20160907
  6. CISPLATIN. [Suspect]
     Active Substance: CISPLATIN
     Indication: ADENOCARCINOMA GASTRIC
     Dosage: 80 MG/M2, CYCLICAL
     Route: 042
     Dates: start: 20160714
  7. VALSARTAN. [Concomitant]
     Active Substance: VALSARTAN
     Indication: HYPERTENSION
     Dosage: UNK
     Dates: start: 201208

REACTIONS (2)
  - Diarrhoea [Unknown]
  - Dehydration [Recovered/Resolved]

NARRATIVE: CASE EVENT DATE: 20160920
